FAERS Safety Report 7053388-X (Version None)
Quarter: 2010Q4

REPORT INFORMATION
  Report Type: 
  Country: None (occurrence: None)
  Receive Date: 20101020
  Receipt Date: 20100924
  Transmission Date: 20110411
  Serious: No
  Sender: FDA-Public Use
  Company Number: US-MYLANLABS-2010S1017773

PATIENT
  Age: 3 Decade
  Sex: Male

DRUGS (1)
  1. LAMOTRIGINE [Suspect]
     Indication: BIPOLAR DISORDER
     Route: 048

REACTIONS (1)
  - MEMORY IMPAIRMENT [None]
